FAERS Safety Report 9013300 (Version 1)
Quarter: 2013Q1

REPORT INFORMATION
  Report Type: Spontaneous
  Country: US (occurrence: None)
  Receive Date: 20130107
  Receipt Date: 20130107
  Transmission Date: 20140127
  Serious: Yes (Other)
  Sender: FDA-Public Use
  Company Number: None

PATIENT
  Age: 56 Year
  Sex: Female
  Weight: 44.91 kg

DRUGS (3)
  1. AMITIZA [Suspect]
     Dosage: 1 TWICE DAILY PO
     Route: 048
     Dates: start: 20120101, end: 20120101
  2. AMITIZA [Suspect]
     Dosage: 1 TWICE DAILY PO
     Route: 048
     Dates: start: 20120101, end: 20120101
  3. AMITIZA [Suspect]
     Indication: ABDOMINAL PAIN
     Dosage: 1 TWICE DAILY PO
     Route: 048
     Dates: start: 20120101, end: 20120101

REACTIONS (3)
  - Abdominal pain [None]
  - Diarrhoea [None]
  - Gastrointestinal sounds abnormal [None]
